FAERS Safety Report 11096649 (Version 1)
Quarter: 2015Q2

REPORT INFORMATION
  Report Type: Spontaneous
  Country: CN (occurrence: CN)
  Receive Date: 20150507
  Receipt Date: 20150507
  Transmission Date: 20150821
  Serious: Yes (Other)
  Sender: FDA-Public Use
  Company Number: CN-NOVOPROD-447593

PATIENT
  Age: 59 Year
  Sex: Female
  Weight: 75 kg

DRUGS (2)
  1. NOVORAPID [Suspect]
     Active Substance: INSULIN ASPART
     Indication: DIABETES MELLITUS
     Dosage: 8 U, TID
     Route: 058
     Dates: start: 20141009, end: 20141012
  2. HUMAN INSULIN [Concomitant]
     Active Substance: INSULIN HUMAN
     Indication: BLOOD GLUCOSE ABNORMAL
     Dosage: TID
     Route: 058
     Dates: start: 20141015, end: 20141021

REACTIONS (13)
  - Dizziness [Recovered/Resolved]
  - Face oedema [Recovering/Resolving]
  - Pruritus [Recovered/Resolved]
  - Injection site erythema [Recovering/Resolving]
  - Laryngeal oedema [Recovered/Resolved]
  - Injection site papule [Recovering/Resolving]
  - Injection site rash [Recovering/Resolving]
  - Injection site macule [Recovering/Resolving]
  - Rash maculo-papular [Recovered/Resolved]
  - Nausea [Recovering/Resolving]
  - Eyelid oedema [Recovering/Resolving]
  - Dysphagia [Recovered/Resolved]
  - Injection site pruritus [Recovering/Resolving]

NARRATIVE: CASE EVENT DATE: 20141010
